FAERS Safety Report 9943252 (Version 1)
Quarter: 2014Q1

REPORT INFORMATION
  Report Type: Spontaneous
  Country: US (occurrence: US)
  Receive Date: 20140303
  Receipt Date: 20140303
  Transmission Date: 20141002
  Serious: Yes (Death)
  Sender: FDA-Public Use
  Company Number: US-BANPHARM-20142273

PATIENT
  Age: 46 Year
  Sex: Male

DRUGS (8)
  1. DIPHENHYDRAMINE UNKNOWN PRODUCT [Suspect]
     Route: 048
  2. FENTANYL [Suspect]
     Route: 062
  3. OXYCODONE [Suspect]
  4. METHADONE [Suspect]
  5. SKELETAL MUSCLE RELAXANT [Suspect]
  6. AMPHETAMINE [Concomitant]
  7. FLUOXETINE [Concomitant]
  8. ALPRAZOLAM [Concomitant]

REACTIONS (2)
  - Death [Fatal]
  - Drug abuse [Fatal]
